FAERS Safety Report 14959654 (Version 1)
Quarter: 2018Q2

REPORT INFORMATION
  Report Type: Spontaneous
  Country: US (occurrence: US)
  Receive Date: 20180531
  Receipt Date: 20180531
  Transmission Date: 20180711
  Serious: No
  Sender: FDA-Public Use
  Company Number: US-PERRIGO-18US002078

PATIENT
  Age: 56 Year
  Sex: Male
  Weight: 86.17 kg

DRUGS (4)
  1. MINOXIDIL. [Suspect]
     Active Substance: MINOXIDIL
     Dosage: 1 CAPFUL, ONCE DAILY
     Route: 061
     Dates: start: 20180108, end: 20180218
  2. MINOXIDIL. [Suspect]
     Active Substance: MINOXIDIL
     Indication: ALOPECIA
     Dosage: 1/2 CAPFUL, BID
     Route: 061
     Dates: start: 20180101, end: 20180107
  3. HYDROCODONE [Concomitant]
     Active Substance: HYDROCODONE
     Indication: PAIN
     Dosage: UNKNOWN, PRN
     Route: 065
     Dates: start: 2007
  4. WARFARIN [Concomitant]
     Active Substance: WARFARIN
     Indication: ANTICOAGULANT THERAPY
     Dosage: UNKNOWN, UNKNOWN
     Route: 065
     Dates: start: 2007

REACTIONS (4)
  - Condition aggravated [Not Recovered/Not Resolved]
  - Product administered at inappropriate site [Recovered/Resolved]
  - Inappropriate schedule of drug administration [Recovered/Resolved]
  - Incorrect dose administered [Recovered/Resolved]

NARRATIVE: CASE EVENT DATE: 20180101
